FAERS Safety Report 20619942 (Version 2)
Quarter: 2022Q2

REPORT INFORMATION
  Report Type: Report from Study
  Country: TW (occurrence: TW)
  Receive Date: 20220322
  Receipt Date: 20220420
  Transmission Date: 20220721
  Serious: Yes (Other)
  Sender: FDA-Public Use
  Company Number: TW-BAYER-2022A039396

PATIENT
  Age: 78 Year
  Sex: Male

DRUGS (3)
  1. EYLEA [Suspect]
     Active Substance: AFLIBERCEPT
     Indication: Neovascular age-related macular degeneration
     Dosage: 0.05 ML, ONCE
     Route: 031
     Dates: start: 202201, end: 202201
  2. EYLEA [Suspect]
     Active Substance: AFLIBERCEPT
     Dosage: 0.05 ML, ONCE
     Route: 031
     Dates: start: 20220209, end: 20220209
  3. EYLEA [Suspect]
     Active Substance: AFLIBERCEPT
     Dosage: 0.05 ML, ONCE
     Route: 031
     Dates: start: 20220309

REACTIONS (3)
  - Retinal oedema [Not Recovered/Not Resolved]
  - Visual impairment [Not Recovered/Not Resolved]
  - Vitreous floaters [Not Recovered/Not Resolved]

NARRATIVE: CASE EVENT DATE: 20220201
